FAERS Safety Report 14159471 (Version 6)
Quarter: 2018Q3

REPORT INFORMATION
  Report Type: Spontaneous
  Country: JP (occurrence: JP)
  Receive Date: 20171106
  Receipt Date: 20180807
  Transmission Date: 20181010
  Serious: Yes (Death, Life-Threatening)
  Sender: FDA-Public Use
  Company Number: JP-ACTELION-A-CH2017-161660

PATIENT
  Age: 76 Year
  Sex: Male

DRUGS (9)
  1. FUROSEMIDE. [Concomitant]
     Active Substance: FUROSEMIDE
  2. OPSUMIT [Suspect]
     Active Substance: MACITENTAN
     Indication: PULMONARY HYPERTENSION
     Dosage: 5 MG, QD
     Route: 048
     Dates: start: 20170915, end: 20171006
  3. OXYGEN. [Concomitant]
     Active Substance: OXYGEN
  4. TADALAFIL [Concomitant]
     Active Substance: TADALAFIL
  5. OPSUMIT [Suspect]
     Active Substance: MACITENTAN
     Dosage: 2.5 MG, QD
     Route: 048
     Dates: start: 20170912, end: 20170914
  6. SAMSCA [Concomitant]
     Active Substance: TOLVAPTAN
  7. WARFARIN [Concomitant]
     Active Substance: WARFARIN
  8. SELARA [Concomitant]
     Active Substance: EPLERENONE
  9. BERAPROST [Concomitant]
     Active Substance: BERAPROST

REACTIONS (7)
  - Left ventricular end-diastolic pressure increased [Not Recovered/Not Resolved]
  - Disseminated intravascular coagulation [Fatal]
  - Orthopnoea [Not Recovered/Not Resolved]
  - Pyrexia [Fatal]
  - Cardiac failure [Not Recovered/Not Resolved]
  - Inflammation [Fatal]
  - Pulmonary congestion [Not Recovered/Not Resolved]

NARRATIVE: CASE EVENT DATE: 20170928
